FAERS Safety Report 5701326-1 (Version None)
Quarter: 2008Q2

REPORT INFORMATION
  Report Type: 
  Country: None (occurrence: None)
  Receive Date: 20080407
  Receipt Date: 20080326
  Transmission Date: 20081010
  Serious: Yes (Hospitalization)
  Sender: FDA-Public Use
  Company Number: AU-JNJFOC-20071202138

PATIENT
  Age: 69 Year
  Sex: Male

DRUGS (15)
  1. DECITABINE (DECITABINE) LYOPHILIZED POWDER [Suspect]
     Indication: ACUTE MYELOID LEUKAEMIA
     Dosage: 40 MG, 1 IN 1 DAY, INTRAVENOUS
     Route: 042
     Dates: start: 20071113, end: 20071117
  2. RANITIDINE (RANITIDINE) UNSPECIFIED [Concomitant]
  3. PANADEINE FORTE (PANADEINE CO) TABLET [Concomitant]
  4. ASPIRIN [Concomitant]
  5. IRBESARTAN (IRBESARTAN) UNSPECIFIED [Concomitant]
  6. DIGOXIN (DIGOXIN) UNSPECIFIED [Concomitant]
  7. METOCLOPRAMIDE (METOCLOPRAMIDE) UNSPECIFIED [Concomitant]
  8. CEFEPIME (CEFEPIME) UNSPECIFIED [Concomitant]
  9. PIPERACILLIN W/TAZOBACTAM (PIP; TAZO) UNSPECIFIED [Concomitant]
  10. AZITHROMYCIN (AZITHROMYCIN) UNSPECIFIED [Concomitant]
  11. FOLATE (FOLATE SODIUM) UNSPECIFIED [Concomitant]
  12. THIAMINE (THIAMINE) UNSPECIFIED [Concomitant]
  13. ESOMEPRAZOLE (ESOMEPRAZOLE) UNSPECIFIED [Concomitant]
  14. LACTULOSE (LACTULOSE) UNSPECIFIED [Concomitant]
  15. PARACETAMOL (PARACETAMOL) UNSPECIFIED [Concomitant]

REACTIONS (16)
  - BLOOD ALBUMIN DECREASED [None]
  - BLOOD ALKALINE PHOSPHATASE INCREASED [None]
  - BLOOD BICARBONATE DECREASED [None]
  - BLOOD BILIRUBIN INCREASED [None]
  - BLOOD CALCIUM INCREASED [None]
  - BLOOD CHLORIDE INCREASED [None]
  - BLOOD GLUCOSE INCREASED [None]
  - BLOOD LACTATE DEHYDROGENASE INCREASED [None]
  - BLOOD SODIUM INCREASED [None]
  - BLOOD UREA INCREASED [None]
  - GASTROENTERITIS [None]
  - HAEMOGLOBIN DECREASED [None]
  - HYPOVOLAEMIC SHOCK [None]
  - NEUTROPHIL COUNT DECREASED [None]
  - PLATELET COUNT DECREASED [None]
  - WHITE BLOOD CELL COUNT DECREASED [None]
